FAERS Safety Report 8957616 (Version 1)
Quarter: 2012Q4

REPORT INFORMATION
  Report Type: 
  Country: US (occurrence: US)
  Receive Date: 20121211
  Receipt Date: 20121211
  Transmission Date: 20130627
  Serious: No
  Sender: FDA-Public Use
  Company Number: US-PFIZER INC-2012312479

PATIENT
  Age: 45 Year
  Sex: Female
  Weight: 63.49 kg

DRUGS (1)
  1. ADVIL [Suspect]
     Indication: PAIN
     Dosage: 200 mg, every 4 to 6 hours
     Dates: start: 201212, end: 201212

REACTIONS (1)
  - Drug ineffective [Unknown]
